FAERS Safety Report 8197662-2 (Version None)
Quarter: 2012Q1

REPORT INFORMATION
  Report Type: 
  Country: None (occurrence: None)
  Receive Date: 20120309
  Receipt Date: 20120302
  Transmission Date: 20120608
  Serious: Yes (Other)
  Sender: FDA-Public Use
  Company Number: CN-PFIZER INC-2012057372

PATIENT
  Age: 35 Year
  Sex: Male

DRUGS (4)
  1. CEFOPERAZONE SODIUM [Suspect]
     Indication: INFECTIOUS PERITONITIS
  2. IMIPENEM AND CILASTATIN SODIUM [Concomitant]
     Indication: INFECTION
     Dosage: UNK
     Route: 041
     Dates: start: 19980803
  3. IMIPENEM AND CILASTATIN SODIUM [Concomitant]
     Indication: INFECTIOUS PERITONITIS
  4. CEFOPERAZONE SODIUM [Suspect]
     Indication: INFECTION
     Dosage: 2.0 G, 2X/DAY
     Route: 041
     Dates: start: 19980806, end: 19980828

REACTIONS (1)
  - EPILEPSY [None]
